FAERS Safety Report 13356453 (Version 1)
Quarter: 2017Q1

REPORT INFORMATION
  Report Type: Spontaneous
  Country: US (occurrence: US)
  Receive Date: 20170321
  Receipt Date: 20170321
  Transmission Date: 20170429
  Serious: Yes (Hospitalization)
  Sender: FDA-Public Use
  Company Number: US-TEVA-750732USA

PATIENT
  Age: 14 Year
  Sex: Female

DRUGS (10)
  1. VENLAFAXINE [Suspect]
     Active Substance: VENLAFAXINE HYDROCHLORIDE
     Indication: SUICIDE ATTEMPT
     Dosage: 10 TABLETS EXTENDED-RELEASE 150 MG
     Route: 048
  2. VANCOMYCIN [Concomitant]
     Active Substance: VANCOMYCIN
     Route: 065
  3. NALOXONE [Concomitant]
     Active Substance: NALOXONE
     Route: 065
  4. CYCLOBENZAPRINE [Suspect]
     Active Substance: CYCLOBENZAPRINE
     Indication: SUICIDE ATTEMPT
     Dosage: 10 TABLETS IMMEDIATE-RELEASE 10 MG
     Route: 048
  5. DIAZEPAM. [Concomitant]
     Active Substance: DIAZEPAM
     Indication: SEIZURE
     Route: 065
  6. FOSPHENYTOIN [Concomitant]
     Active Substance: FOSPHENYTOIN\FOSPHENYTOIN SODIUM
     Indication: SEIZURE
     Route: 065
  7. BUPROPION EXTENDED RELEASE [Suspect]
     Active Substance: BUPROPION
     Indication: SUICIDE ATTEMPT
     Dosage: 40 TABLETS SUSTAINED-RELEASE 150 MG
     Route: 048
  8. CEFTRIAXONE. [Concomitant]
     Active Substance: CEFTRIAXONE
     Route: 065
  9. FENTORA [Suspect]
     Active Substance: FENTANYL CITRATE
     Indication: SUICIDE ATTEMPT
     Dosage: SINGLE DOSE
     Route: 065
  10. ACICLOVIR [Concomitant]
     Active Substance: ACYCLOVIR
     Route: 065

REACTIONS (5)
  - Decorticate posture [Recovering/Resolving]
  - Intentional overdose [Recovering/Resolving]
  - Encephalopathy [Recovering/Resolving]
  - Serotonin syndrome [Recovering/Resolving]
  - Suicide attempt [Recovering/Resolving]
